FAERS Safety Report 11131925 (Version 2)
Quarter: 2015Q2

REPORT INFORMATION
  Report Type: Spontaneous
  Country: IT (occurrence: None)
  Receive Date: 20150520
  Receipt Date: 20150630
  Transmission Date: 20150821
  Serious: Yes (Hospitalization, Other)
  Sender: FDA-Public Use
  Company Number: DEP_02826_2015

PATIENT
  Age: 26 Year
  Sex: Female

DRUGS (2)
  1. PALEXIA [Suspect]
     Active Substance: TAPENTADOL HYDROCHLORIDE
     Indication: DRUG ABUSE
     Route: 048
     Dates: start: 20150218, end: 20150218
  2. PATROL [Concomitant]
     Active Substance: ACETAMINOPHEN\TRAMADOL HYDROCHLORIDE

REACTIONS (4)
  - Drug abuse [None]
  - Bradyphrenia [None]
  - Bradykinesia [None]
  - Intentional overdose [None]

NARRATIVE: CASE EVENT DATE: 20150218
